FAERS Safety Report 9885271 (Version 1)
Quarter: 2014Q1

REPORT INFORMATION
  Report Type: Spontaneous
  Country: US (occurrence: None)
  Receive Date: 20140207
  Receipt Date: 20140207
  Transmission Date: 20141002
  Serious: Yes (Hospitalization)
  Sender: FDA-Public Use
  Company Number: None

PATIENT
  Age: 67 Year
  Sex: Male
  Weight: 96.16 kg

DRUGS (6)
  1. BEVACIZUMAB [Suspect]
     Indication: OESOPHAGEAL CARCINOMA
     Route: 042
     Dates: start: 20130814
  2. 5-FU [Suspect]
     Indication: OESOPHAGEAL CARCINOMA
     Dates: start: 20131009
  3. OXALIPLATIN [Suspect]
     Indication: OESOPHAGEAL CARCINOMA
  4. FOLIC ACID [Suspect]
     Indication: OESOPHAGEAL CARCINOMA
  5. FOLFOX [Concomitant]
  6. LEUCOVORIN [Concomitant]

REACTIONS (1)
  - Tracheo-oesophageal fistula [None]
